FAERS Safety Report 7024154-6 (Version None)
Quarter: 2010Q4

REPORT INFORMATION
  Report Type: 
  Country: None (occurrence: None)
  Receive Date: 20101001
  Receipt Date: 20100927
  Transmission Date: 20110411
  Serious: Yes (Other)
  Sender: FDA-Public Use
  Company Number: IT-ROCHE-726574

PATIENT
  Sex: Female

DRUGS (5)
  1. HERCEPTIN [Suspect]
     Indication: BREAST CANCER
     Dosage: FORM: NOT PROVIDED, FREQUENCY: CYCLE.TEMPORARILY DISCONTINUED
     Route: 042
     Dates: start: 20100415, end: 20100901
  2. PACLITAXEL [Concomitant]
     Indication: BREAST CANCER
     Route: 042
     Dates: start: 20100401, end: 20100707
  3. CITALOPRAM HYDROBROMIDE [Concomitant]
     Route: 048
  4. ATORVASTATIN [Concomitant]
     Dosage: ATORVASTATIN/TORVAST
     Route: 048
  5. LETROZOLE [Concomitant]
     Dosage: DRUG NAME : LETROZOLE/FEMARA
     Route: 048

REACTIONS (1)
  - CHOREOATHETOSIS [None]
